FAERS Safety Report 4517192-6 (Version None)
Quarter: 2004Q4

REPORT INFORMATION
  Report Type: 
  Country: None (occurrence: None)
  Receive Date: 20041130
  Receipt Date: 20041116
  Transmission Date: 20050328
  Serious: Yes (Other)
  Sender: FDA-Public Use
  Company Number: DE_041114711

PATIENT
  Age: 50 Year
  Sex: Female

DRUGS (2)
  1. YENTREVE (DULOXETINE HYDROCHLORIDE) [Suspect]
     Indication: STRESS INCONTINENCE
     Dosage: 1 DAG FORM/2 DAY
     Dates: start: 20041105
  2. YENTREVE (DULOXETINE HYDROCHLORIDE) [Suspect]
     Indication: URINARY INCONTINENCE
     Dosage: 1 DAG FORM/2 DAY
     Dates: start: 20041105

REACTIONS (1)
  - BLOOD PRESSURE INCREASED [None]
